FAERS Safety Report 22370539 (Version 2)
Quarter: 2023Q2

REPORT INFORMATION
  Report Type: Report from Study
  Country: GR (occurrence: GR)
  Receive Date: 20230526
  Receipt Date: 20230530
  Transmission Date: 20230721
  Serious: Yes (Hospitalization, Other)
  Sender: FDA-Public Use
  Company Number: GR-ABBVIE-5173953

PATIENT
  Age: 81 Year
  Sex: Female
  Weight: 73 kg

DRUGS (16)
  1. CARBIDOPA\LEVODOPA [Suspect]
     Active Substance: CARBIDOPA\LEVODOPA
     Indication: Parkinson^s disease
     Dosage: MORNING DOSE: 4.0ML; CONTINUOUS RATE: 1.5ML/H; EXTRA DOSE: 1.0ML
     Route: 050
     Dates: start: 20230516
  2. CARBIDOPA\LEVODOPA [Suspect]
     Active Substance: CARBIDOPA\LEVODOPA
     Dosage: MORNING DOSE: 7.5ML; CONTINUOUS RATE: 1.9ML/H; EXTRA DOSE: 1.0ML
     Route: 050
  3. CARBIDOPA\LEVODOPA [Suspect]
     Active Substance: CARBIDOPA\LEVODOPA
     Dosage: MORNING DOSE: 7.0ML; CONTINUOUS RATE: 1.5ML/H; EXTRA DOSE: 1.0ML
     Route: 050
  4. CARBIDOPA\LEVODOPA [Suspect]
     Active Substance: CARBIDOPA\LEVODOPA
     Dosage: MORNING DOSE: 7.5ML; CONTINUOUS RATE: 1.9ML/H; EXTRA DOSE: 1.0ML
     Route: 050
  5. bisoprolol (Emconcor) [Concomitant]
     Indication: Cardiac disorder
     Dosage: UNIT DOSE: 2.5 MG
     Route: 048
  6. ropinirole (Requip) [Concomitant]
     Indication: Parkinson^s disease
     Route: 048
  7. ropinirole (Requip) [Concomitant]
     Indication: Parkinson^s disease
     Route: 048
  8. Rosuvastatin (Rosuben) [Concomitant]
     Indication: Hypercholesterolaemia
     Route: 048
  9. Mirtazapine (Depreram) [Concomitant]
     Indication: Product used for unknown indication
     Route: 048
  10. LASIX [Concomitant]
     Active Substance: FUROSEMIDE
     Indication: Product used for unknown indication
     Route: 048
  11. Rasagiline (Sagilia) [Concomitant]
     Indication: Parkinson^s disease
     Route: 048
  12. clonazepam (Aklonil) [Concomitant]
     Indication: Nightmare
     Dosage: UNIT DOSE: 0.5 MG
     Route: 048
  13. cefuroxime (Zinacef) [Concomitant]
     Indication: Prophylaxis
     Dosage: TIME INTERVAL: 0.33333333 DAYS: UNIT DOSE: 1.5G
     Route: 042
  14. NEXIUM [Concomitant]
     Active Substance: ESOMEPRAZOLE MAGNESIUM
     Indication: Gastric ulcer
     Route: 042
     Dates: start: 20230517
  15. NEXIUM [Concomitant]
     Active Substance: ESOMEPRAZOLE MAGNESIUM
     Indication: Gastric ulcer
     Route: 042
     Dates: start: 20230517
  16. NEXIUM [Concomitant]
     Active Substance: ESOMEPRAZOLE MAGNESIUM
     Indication: Gastric ulcer
     Route: 042
     Dates: start: 20230517

REACTIONS (4)
  - Abdominal pain [Recovered/Resolved]
  - Oesophageal haemorrhage [Unknown]
  - C-reactive protein increased [Unknown]
  - Pyrexia [Unknown]

NARRATIVE: CASE EVENT DATE: 20230516
